FAERS Safety Report 19882814 (Version 1)
Quarter: 2021Q3

REPORT INFORMATION
  Report Type: Report from Study
  Country: EG (occurrence: EG)
  Receive Date: 20210924
  Receipt Date: 20210924
  Transmission Date: 20211014
  Serious: Yes (Death, Other)
  Sender: FDA-Public Use
  Company Number: NVSC2021EG217004

PATIENT
  Age: 68 Year
  Sex: Male

DRUGS (8)
  1. NITRO MAK RETARD [Concomitant]
     Indication: CARDIAC FAILURE
     Dosage: 1 DF, QD
     Route: 065
  2. BURINEX [Concomitant]
     Active Substance: BUMETANIDE
     Indication: PROPHYLAXIS
     Dosage: 1 DF, QD
     Route: 065
  3. PLAVIX [Concomitant]
     Active Substance: CLOPIDOGREL BISULFATE
     Indication: PROPHYLAXIS
     Dosage: 1 DF, QD
     Route: 065
  4. ENTRESTO [Suspect]
     Active Substance: SACUBITRIL\VALSARTAN
     Indication: CARDIAC FAILURE
     Dosage: 100 MG, BID
     Route: 048
     Dates: start: 2020
  5. EBIXA [Concomitant]
     Active Substance: MEMANTINE HYDROCHLORIDE
     Indication: PROPHYLAXIS
     Dosage: 1 DF, QD
     Route: 065
  6. ENTRESTO [Suspect]
     Active Substance: SACUBITRIL\VALSARTAN
     Dosage: 0.5 DF OF 50 MG, BID
     Route: 048
     Dates: start: 2020
  7. ENTRESTO [Suspect]
     Active Substance: SACUBITRIL\VALSARTAN
     Dosage: 0.5 DF OF 100 MG, BID
     Route: 048
     Dates: start: 2020
  8. ASPOCID [Concomitant]
     Active Substance: ASPIRIN
     Indication: PROPHYLAXIS
     Dosage: 1 DF, QD
     Route: 065

REACTIONS (5)
  - Sudden death [Fatal]
  - Peripheral swelling [Recovering/Resolving]
  - Gout [Recovering/Resolving]
  - Wrong technique in product usage process [Unknown]
  - Off label use [Unknown]

NARRATIVE: CASE EVENT DATE: 2020
